FAERS Safety Report 16117730 (Version 2)
Quarter: 2019Q2

REPORT INFORMATION
  Report Type: Report from Study
  Country: ID (occurrence: ID)
  Receive Date: 20190326
  Receipt Date: 20190402
  Transmission Date: 20190711
  Serious: Yes (Hospitalization, Other)
  Sender: FDA-Public Use
  Company Number: ID-ASTRAZENECA-2019SE43166

PATIENT
  Sex: Female

DRUGS (1)
  1. TAGRISSO [Suspect]
     Active Substance: OSIMERTINIB
     Indication: NON-SMALL CELL LUNG CANCER
     Route: 048
     Dates: start: 20181013, end: 20190307

REACTIONS (6)
  - Metastases to central nervous system [Unknown]
  - Gait disturbance [Unknown]
  - Speech disorder [Unknown]
  - Malignant neoplasm progression [Unknown]
  - Asthenia [Unknown]
  - Erythema [Recovered/Resolved]
